FAERS Safety Report 6059119-4 (Version None)
Quarter: 2009Q1

REPORT INFORMATION
  Report Type: 
  Country: None (occurrence: None)
  Receive Date: 20090130
  Receipt Date: 20090121
  Transmission Date: 20090719
  Serious: Yes (Death)
  Sender: FDA-Public Use
  Company Number: US-JNJFOC-20090105665

PATIENT
  Sex: Female
  Weight: 60.78 kg

DRUGS (7)
  1. FENTANYL-75 [Suspect]
     Indication: PAIN
     Route: 062
  2. PROMETHAZINE [Concomitant]
  3. FLUCONAZOLE [Concomitant]
  4. MORPHINE SUL TAB [Concomitant]
  5. COUMADIN [Concomitant]
  6. MEPERIDINE HCL [Concomitant]
  7. IBUPROFEN TABLETS [Concomitant]

REACTIONS (1)
  - PANCREATIC CARCINOMA METASTATIC [None]
